FAERS Safety Report 24081551 (Version 1)
Quarter: 2024Q3

REPORT INFORMATION
  Report Type: Report from Study
  Country: IN (occurrence: IN)
  Receive Date: 20240712
  Receipt Date: 20240712
  Transmission Date: 20241017
  Serious: Yes (Death, Other)
  Sender: CIPLA
  Company Number: IN-CIPLA LTD.-2024IN06760

PATIENT

DRUGS (3)
  1. METOPROLOL SUCCINATE [Suspect]
     Active Substance: METOPROLOL SUCCINATE
     Indication: Product used for unknown indication
     Dosage: UNK, QD (DOSE AND FREQUENCY-1) (STRENGTH-50/5 MG)
     Route: 048
     Dates: start: 202311
  2. ROZAGOLD [Concomitant]
     Indication: Product used for unknown indication
     Dosage: UNK, STRENGTH: 71/71/2, QD (0-0-1)
     Route: 065
  3. ANGISPAN TR [Concomitant]
     Indication: Product used for unknown indication
     Dosage: UNK, BID (STRENGTH: 2.16) (1-0-1-0)
     Route: 065

REACTIONS (1)
  - Myocardial infarction [Fatal]

NARRATIVE: CASE EVENT DATE: 20240415
